FAERS Safety Report 16531790 (Version 1)
Quarter: 2019Q3

REPORT INFORMATION
  Report Type: Spontaneous
  Country: US (occurrence: US)
  Receive Date: 20190703
  Receipt Date: 20190703
  Transmission Date: 20191004
  Serious: Yes (Death, Other)
  Sender: FDA-Public Use
  Company Number: None

PATIENT
  Age: 42 Year
  Weight: 105 kg

DRUGS (1)
  1. LEVOFLOXACIN. [Suspect]
     Active Substance: LEVOFLOXACIN
     Indication: PNEUMONIA
     Route: 042
     Dates: start: 20190529, end: 20190603

REACTIONS (12)
  - Coronary artery disease [None]
  - Mitral valve incompetence [None]
  - Tricuspid valve incompetence [None]
  - Aortic valve incompetence [None]
  - Cardiac arrest [None]
  - Cerebral infarction [None]
  - Hypoxic-ischaemic encephalopathy [None]
  - Aneurysm [None]
  - Vascular pseudoaneurysm [None]
  - Acute myocardial infarction [None]
  - Procedural complication [None]
  - Pneumonia [None]

NARRATIVE: CASE EVENT DATE: 20190702
